FAERS Safety Report 5601500-9 (Version None)
Quarter: 2008Q1

REPORT INFORMATION
  Report Type: 
  Country: None (occurrence: None)
  Receive Date: 20080124
  Receipt Date: 20070221
  Transmission Date: 20080703
  Serious: No
  Sender: FDA-Public Use
  Company Number: US-BAYER-200614761BCC

PATIENT
  Age: 38 Year
  Sex: Male
  Weight: 91 kg

DRUGS (3)
  1. ALEVE COLD AND SINUS [Suspect]
     Indication: SINUS CONGESTION
     Dosage: TOTAL DAILY DOSE: 440 MG  UNIT DOSE: 220 MG
     Route: 048
     Dates: start: 20010101
  2. ALEVE COLD AND SINUS [Suspect]
     Dosage: TOTAL DAILY DOSE: 440 MG  UNIT DOSE: 220 MG
     Route: 048
     Dates: start: 20061116, end: 20061119
  3. ALEVE COLD AND SINUS [Suspect]
     Dosage: TOTAL DAILY DOSE: 220 MG  UNIT DOSE: 220 MG
     Route: 048
     Dates: start: 20061120

REACTIONS (3)
  - PARAESTHESIA [None]
  - SINUS CONGESTION [None]
  - SINUS HEADACHE [None]
